FAERS Safety Report 4746605-X (Version None)
Quarter: 2005Q3

REPORT INFORMATION
  Report Type: 
  Country: None (occurrence: None)
  Receive Date: 20050815
  Receipt Date: 20050728
  Transmission Date: 20060218
  Serious: Yes (Life-Threatening, Hospitalization)
  Sender: FDA-Public Use
  Company Number: JP_050707110

PATIENT
  Age: 65 Year
  Sex: Male
  Weight: 65 kg

DRUGS (9)
  1. GEMZAR [Suspect]
     Indication: NON-SMALL CELL LUNG CANCER
     Dosage: 1350 MG OTHER
     Dates: start: 20050628, end: 20050705
  2. NAVELBINE [Concomitant]
  3. ASPIRIN [Concomitant]
  4. ISOBIDE (ISOSORBIDE) [Concomitant]
  5. MERISOLON (BETAHISTINE HYDROCHLORIDE) [Concomitant]
  6. CODEINE PHOSPHATE [Concomitant]
  7. MUCODYNE (CARBOCISTEINE) [Concomitant]
  8. HUSTAGIN (PLANTAGO MAJOR) [Concomitant]
  9. MOBIC [Concomitant]

REACTIONS (4)
  - ARRHYTHMIA [None]
  - GASTROINTESTINAL PERFORATION [None]
  - PNEUMONITIS [None]
  - REFLUX OESOPHAGITIS [None]
